FAERS Safety Report 14664914 (Version 2)
Quarter: 2018Q1

REPORT INFORMATION
  Report Type: Spontaneous
  Country: JP (occurrence: JP)
  Receive Date: 20180321
  Receipt Date: 20180329
  Transmission Date: 20180509
  Serious: Yes (Hospitalization)
  Sender: FDA-Public Use
  Company Number: JP-VALIDUS PHARMACEUTICALS LLC-JP-2018VAL000502

PATIENT
  Age: 79 Year
  Sex: Male

DRUGS (22)
  1. THYRADIN-S [Suspect]
     Active Substance: LEVOTHYROXINE
     Indication: HYPOPARATHYROIDISM
     Dosage: 50 ?G, QD
     Route: 048
     Dates: start: 20180215, end: 20180217
  2. AMLODIPINE [Suspect]
     Active Substance: AMLODIPINE BESYLATE
     Indication: HYPERTENSION
     Dosage: 5 MG, QD
     Route: 048
     Dates: start: 20180208, end: 20180217
  3. SENNA [Suspect]
     Active Substance: SENNA LEAF\SENNOSIDES\SENNOSIDES A AND B
     Indication: CONSTIPATION PROPHYLAXIS
     Dosage: UNK, BID
     Route: 048
     Dates: start: 20180215, end: 20180217
  4. FUROSEMIDE. [Suspect]
     Active Substance: FUROSEMIDE
     Indication: OEDEMA PERIPHERAL
     Dosage: 20 MG, QD
     Route: 048
     Dates: start: 20171206, end: 20180217
  5. NIVOLUMAB [Suspect]
     Active Substance: NIVOLUMAB
     Dosage: 360 MG, EVERY THREE WEEKS
     Route: 042
     Dates: start: 20180202, end: 20180202
  6. TS-1 [Suspect]
     Active Substance: GIMERACIL\OTERACIL\TEGAFUR
     Indication: GASTRIC CANCER
     Dosage: 60 MG, BID
     Route: 048
     Dates: start: 20171212
  7. DECADRON [Suspect]
     Active Substance: DEXAMETHASONE
     Indication: PROPHYLAXIS OF NAUSEA AND VOMITING
     Dosage: 8 MG, QD
     Route: 048
     Dates: start: 20180215, end: 20180217
  8. DERMOVATE [Concomitant]
     Active Substance: CLOBETASOL
     Indication: PRODUCT USED FOR UNKNOWN INDICATION
     Dosage: UNK
     Dates: start: 20180215
  9. NIVOLUMAB [Suspect]
     Active Substance: NIVOLUMAB
     Dosage: 360 MG, EVERY THREE WEEKS
     Route: 042
     Dates: start: 20180208, end: 20180208
  10. TAKECAB [Suspect]
     Active Substance: VONOPRAZAN FUMURATE
     Indication: ULCER
     Dosage: 20 MG, QD
     Route: 048
     Dates: start: 20171206, end: 20180217
  11. IRBETAN [Suspect]
     Active Substance: IRBESARTAN
     Indication: HYPERTENSION
     Dosage: 100 MG, QD
     Route: 048
     Dates: start: 20180126, end: 20180217
  12. NIVOLUMAB [Suspect]
     Active Substance: NIVOLUMAB
     Dosage: 360 MG, EVERY THREE WEEKS
     Route: 042
     Dates: start: 20160125, end: 20160125
  13. NIVOLUMAB [Suspect]
     Active Substance: NIVOLUMAB
     Dosage: 360 MG, EVERY THREE WEEKS
     Route: 042
     Dates: start: 20160215, end: 20160215
  14. NIVOLUMAB [Suspect]
     Active Substance: NIVOLUMAB
     Indication: GASTRIC CANCER RECURRENT
     Dosage: 360 MG, EVERY THREE WEEKS
     Route: 042
     Dates: start: 20171212, end: 20171212
  15. EMEND [Suspect]
     Active Substance: APREPITANT
     Indication: PROPHYLAXIS OF NAUSEA AND VOMITING
     Dosage: 80 MG, QD
     Route: 048
     Dates: start: 20180215, end: 20180217
  16. SPIRONOLACTONE. [Suspect]
     Active Substance: SPIRONOLACTONE
     Indication: ASCITES
     Dosage: 25 MG, QD
     Route: 048
     Dates: start: 20180130, end: 20180217
  17. TAKECAB [Suspect]
     Active Substance: VONOPRAZAN FUMURATE
     Indication: NEOPLASM
  18. MAGMITT [Suspect]
     Active Substance: MAGNESIUM OXIDE
     Indication: CONSTIPATION PROPHYLAXIS
     Dosage: 500 MG, TID
     Route: 048
     Dates: start: 2017, end: 20180217
  19. TS-1 [Suspect]
     Active Substance: GIMERACIL\OTERACIL\TEGAFUR
     Dosage: 50 MG, BID
     Route: 048
     Dates: start: 20180215, end: 20180217
  20. ELPLAT [Suspect]
     Active Substance: OXALIPLATIN
     Indication: GASTRIC CANCER
     Dosage: 225.42 MG, EVERY THREE WEEKS
     Route: 042
     Dates: start: 20171212, end: 20171212
  21. ELPLAT [Suspect]
     Active Substance: OXALIPLATIN
     Dosage: 173.4 MG, EVERY THREE WEEKS
     Route: 042
     Dates: start: 20180215, end: 20180215
  22. AMITIZA [Suspect]
     Active Substance: LUBIPROSTONE
     Indication: CONSTIPATION PROPHYLAXIS
     Dosage: 48 ?G, QD
     Route: 048
     Dates: start: 20180126, end: 20180217

REACTIONS (4)
  - Diarrhoea [Recovering/Resolving]
  - Asthenia [Recovering/Resolving]
  - Ascites [Recovering/Resolving]
  - Hepatic function abnormal [Recovering/Resolving]

NARRATIVE: CASE EVENT DATE: 20180217
